FAERS Safety Report 6267012-7 (Version None)
Quarter: 2009Q3

REPORT INFORMATION
  Report Type: 
  Country: None (occurrence: None)
  Receive Date: 20090710
  Receipt Date: 20090710
  Transmission Date: 20100115
  Serious: Yes (Other)
  Sender: FDA-Public Use
  Company Number: None

PATIENT
  Age: 58 Year
  Sex: Female
  Weight: 61.2356 kg

DRUGS (1)
  1. TRILIPIX [Suspect]
     Indication: BLOOD TRIGLYCERIDES INCREASED
     Dosage: 1 CAPSULE EVERY DAY PO
     Route: 048
     Dates: start: 20090617, end: 20090707

REACTIONS (2)
  - BLOOD PRESSURE DIASTOLIC DECREASED [None]
  - UPPER RESPIRATORY TRACT INFECTION [None]
